FAERS Safety Report 4367012-8 (Version None)
Quarter: 2004Q2

REPORT INFORMATION
  Report Type: 
  Country: None (occurrence: None)
  Receive Date: 20040527
  Receipt Date: 20040527
  Transmission Date: 20050107
  Serious: Yes (Hospitalization, Disabling)
  Sender: FDA-Public Use
  Company Number: None

PATIENT
  Sex: Female
  Weight: 49.8957 kg

DRUGS (6)
  1. MELLARIL [Suspect]
     Dosage: PILLS, DAILY
  2. PROLIXIN [Suspect]
  3. HALDOL [Suspect]
  4. STELAZINE [Suspect]
  5. THORAZINE [Suspect]
  6. BENADRYL [Concomitant]

REACTIONS (6)
  - BRUXISM [None]
  - DYSKINESIA [None]
  - DYSPNOEA [None]
  - FEELING ABNORMAL [None]
  - MUSCLE DISORDER [None]
  - PANIC REACTION [None]
